FAERS Safety Report 8927227 (Version 2)
Quarter: 2013Q1

REPORT INFORMATION
  Report Type: Report from Study
  Country: US (occurrence: US)
  Receive Date: 20121127
  Receipt Date: 20130110
  Transmission Date: 20140127
  Serious: Yes (Hospitalization)
  Sender: FDA-Public Use
  Company Number: US-ROCHE-1158849

PATIENT
  Sex: Female
  Weight: 58.11 kg

DRUGS (4)
  1. BEVACIZUMAB [Suspect]
     Indication: NON-SMALL CELL LUNG CANCER
     Route: 042
     Dates: start: 201206, end: 201210
  2. ERBITUX [Concomitant]
     Indication: NON-SMALL CELL LUNG CANCER
     Route: 042
     Dates: end: 201210
  3. PACLITAXEL [Concomitant]
     Indication: NON-SMALL CELL LUNG CANCER
     Route: 042
     Dates: end: 201210
  4. CARBOPLATIN [Concomitant]
     Indication: NON-SMALL CELL LUNG CANCER
     Route: 042
     Dates: end: 201210

REACTIONS (2)
  - Gastrointestinal disorder [Recovered/Resolved]
  - Abdominal pain [Recovered/Resolved]
